FAERS Safety Report 21144466 (Version 4)
Quarter: 2023Q1

REPORT INFORMATION
  Report Type: Spontaneous
  Country: US (occurrence: US)
  Receive Date: 20220728
  Receipt Date: 20230131
  Transmission Date: 20230418
  Serious: Yes (Other)
  Sender: FDA-Public Use
  Company Number: US-PFIZER INC-2021650928

PATIENT
  Age: 53 Year
  Sex: Female

DRUGS (1)
  1. BOSULIF [Suspect]
     Active Substance: BOSUTINIB MONOHYDRATE
     Indication: Acute lymphocytic leukaemia
     Dosage: 400 MG

REACTIONS (4)
  - Renal failure [Unknown]
  - Alopecia [Unknown]
  - Neurological symptom [Unknown]
  - Off label use [Unknown]
